FAERS Safety Report 4683352-7 (Version None)
Quarter: 2005Q2

REPORT INFORMATION
  Report Type: 
  Country: None (occurrence: None)
  Receive Date: 20050606
  Receipt Date: 20050606
  Transmission Date: 20051028
  Serious: Yes (Life-Threatening)
  Sender: FDA-Public Use
  Company Number: None

PATIENT
  Age: 69 Year
  Sex: Male
  Weight: 81.6475 kg

DRUGS (2)
  1. CIPRO [Suspect]
     Indication: LUNG INFECTION
     Dates: start: 19981115, end: 19981215
  2. CIPRO [Suspect]
     Indication: PHARYNGITIS
     Dates: start: 19981115, end: 19981215

REACTIONS (1)
  - CARDIAC DISORDER [None]
